FAERS Safety Report 5091045-X (Version None)
Quarter: 2006Q3

REPORT INFORMATION
  Report Type: 
  Country: None (occurrence: None)
  Receive Date: 20060829
  Receipt Date: 20050815
  Transmission Date: 20061208
  Serious: No
  Sender: FDA-Public Use
  Company Number: US-GLAXOSMITHKLINE-A0570234A

PATIENT
  Age: 47 Year
  Sex: Male
  Weight: 68.2 kg

DRUGS (5)
  1. ZOVIRAX [Suspect]
     Dosage: 800MG TWICE PER DAY
     Route: 048
  2. VALTREX [Suspect]
     Dosage: 500MG TWICE PER DAY
     Route: 048
  3. FAMCICLOVIR [Suspect]
  4. VITAMINS [Concomitant]
  5. DOCUSATE [Concomitant]

REACTIONS (8)
  - ABNORMAL DREAMS [None]
  - CONFUSIONAL STATE [None]
  - CONSTIPATION [None]
  - DYSGEUSIA [None]
  - FATIGUE [None]
  - INSOMNIA [None]
  - STOMACH DISCOMFORT [None]
  - WEIGHT INCREASED [None]
